FAERS Safety Report 8430864-6 (Version None)
Quarter: 2012Q2

REPORT INFORMATION
  Report Type: 
  Country: None (occurrence: None)
  Receive Date: 20120323
  Receipt Date: 20110913
  Transmission Date: 20120825
  Serious: Yes (Hospitalization, Other)
  Sender: FDA-Public Use
  Company Number: 163-21880-11070283

PATIENT
  Age: 70 Year
  Sex: Male

DRUGS (20)
  1. DIOVAN [Concomitant]
  2. FIBER (POLYCARBOPHIL CALCIUM) [Concomitant]
  3. ACETAMINOPHEN [Concomitant]
  4. REVLIMID [Suspect]
     Indication: MULTIPLE MYELOMA
     Dosage: 25 MG, 1 IN 1 D, PO, 10 MG, QD X 21 D, PO
     Route: 048
     Dates: start: 20101013
  5. REVLIMID [Suspect]
     Indication: MULTIPLE MYELOMA
     Dosage: 25 MG, 1 IN 1 D, PO, 10 MG, QD X 21 D, PO
     Route: 048
     Dates: start: 20110401
  6. VIAGRA [Concomitant]
  7. ASPIRIN [Concomitant]
  8. DEPO-TESTOSTERONE [Concomitant]
  9. SUDAFED 12 HOUR [Concomitant]
  10. VALSARTAN [Concomitant]
  11. ATORVASTATIN [Concomitant]
  12. CABERGOLINE [Concomitant]
  13. OMEPRAZOLE [Concomitant]
  14. HYDROCHLOROTHIAZIDE [Concomitant]
  15. TIMOLOL MALEATE [Concomitant]
  16. BROMOCRIPTINEI (BROMOCRIPTINE) [Concomitant]
  17. PRENATAL VITAMINS (PRENATAL VITAMINS) [Concomitant]
  18. DECADRON [Concomitant]
  19. LEVOXYL [Concomitant]
  20. PRAVASTATIN [Concomitant]

REACTIONS (1)
  - PULMONARY EMBOLISM [None]
